FAERS Safety Report 10792591 (Version 8)
Quarter: 2016Q2

REPORT INFORMATION
  Report Type: Report from Study
  Country: BR (occurrence: BR)
  Receive Date: 20150213
  Receipt Date: 20160510
  Transmission Date: 20160815
  Serious: Yes (Other)
  Sender: FDA-Public Use
  Company Number: PHHY2015BR011352

PATIENT
  Age: 52 Year
  Sex: Female
  Weight: 79 kg

DRUGS (3)
  1. CABERGOLINE. [Concomitant]
     Active Substance: CABERGOLINE
     Indication: ACROMEGALY
     Dosage: 2 DF, QW
     Route: 048
  2. PREMARIN [Concomitant]
     Active Substance: ESTROGENS, CONJUGATED
     Indication: PRODUCT USED FOR UNKNOWN INDICATION
     Dosage: ONCE EVERY 15 DAYS
     Route: 048
  3. SANDOSTATIN LAR DEPOT [Suspect]
     Active Substance: OCTREOTIDE ACETATE
     Indication: ACROMEGALY
     Dosage: 30 MG, QMO (EVERY 28 DAYS)
     Route: 030
     Dates: start: 2008

REACTIONS (22)
  - Pain [Unknown]
  - Skin injury [Unknown]
  - Overweight [Not Recovered/Not Resolved]
  - Pain in extremity [Not Recovered/Not Resolved]
  - Body height decreased [Not Recovered/Not Resolved]
  - Vessel puncture site pain [Unknown]
  - Angiopathy [Unknown]
  - Weight increased [Not Recovered/Not Resolved]
  - Needle issue [Not Recovered/Not Resolved]
  - Blood growth hormone increased [Unknown]
  - Wrong technique in product usage process [Unknown]
  - Abdominal distension [Not Recovered/Not Resolved]
  - Weight fluctuation [Not Recovered/Not Resolved]
  - Insulin-like growth factor increased [Unknown]
  - Arthralgia [Not Recovered/Not Resolved]
  - Vascular injury [Unknown]
  - Peripheral swelling [Not Recovered/Not Resolved]
  - Skin fissures [Unknown]
  - Mass [Unknown]
  - Sleep disorder [Not Recovered/Not Resolved]
  - Contusion [Unknown]
  - Injection site hypoaesthesia [Unknown]

NARRATIVE: CASE EVENT DATE: 201408
